FAERS Safety Report 8780240 (Version 1)
Quarter: 2012Q4

REPORT INFORMATION
  Report Type: Spontaneous
  Country: US (occurrence: None)
  Receive Date: 20120904
  Receipt Date: 20120904
  Transmission Date: 20130627
  Serious: No
  Sender: FDA-Public Use
  Company Number: None

PATIENT
  Age: 50 Year
  Sex: Male
  Weight: 96.16 kg

DRUGS (2)
  1. ZOLPIDEM TARTRATE [Suspect]
     Dosage: 1 at bedtime 1 a day po
     Route: 048
     Dates: start: 20120405, end: 20120418
  2. ZOLPIDEM TARTRATE [Suspect]
     Dates: start: 20120817, end: 20120829

REACTIONS (1)
  - Paradoxical drug reaction [None]
